FAERS Safety Report 7780870-X (Version None)
Quarter: 2011Q3

REPORT INFORMATION
  Report Type: 
  Country: None (occurrence: None)
  Receive Date: 20110923
  Receipt Date: 20110910
  Transmission Date: 20111222
  Serious: Yes (Hospitalization, Other)
  Sender: FDA-Public Use
  Company Number: 2011AP002024

PATIENT
  Age: 65 Year
  Sex: Male

DRUGS (11)
  1. ACYCLOVIR [Suspect]
     Indication: HERPES ZOSTER
     Dosage: 500 MG;5XD;PO
     Route: 048
  2. CALCIUM CARBONATE [Concomitant]
  3. HYDRALAZINE HCL [Concomitant]
  4. LEVOTHYROXINE SODIUM [Concomitant]
  5. ACETYLSALICYLIC ACID SRT [Concomitant]
  6. GLIPIZIDE [Concomitant]
  7. PHENYTOIN [Concomitant]
  8. BENAZEPRIL HYDROCHLORIDE [Concomitant]
  9. FUROSEMIDE [Concomitant]
  10. SIMVASTATIN [Concomitant]
  11. AMLODIPINE [Concomitant]

REACTIONS (10)
  - SOMNOLENCE [None]
  - ERYTHEMA [None]
  - ATAXIA [None]
  - FATIGUE [None]
  - CONFUSIONAL STATE [None]
  - OXYGEN SATURATION DECREASED [None]
  - TOXICITY TO VARIOUS AGENTS [None]
  - MENTAL STATUS CHANGES [None]
  - NYSTAGMUS [None]
  - BLOOD PRESSURE INCREASED [None]
